FAERS Safety Report 11745695 (Version 2)
Quarter: 2016Q1

REPORT INFORMATION
  Report Type: Spontaneous
  Country: BG (occurrence: BG)
  Receive Date: 20151117
  Receipt Date: 20160303
  Transmission Date: 20160525
  Serious: Yes (Life-Threatening)
  Sender: FDA-Public Use
  Company Number: BG-ASTRAZENECA-2015SF10033

PATIENT
  Age: 52 Year
  Sex: Female

DRUGS (8)
  1. GLYCERYL TRINITRATE [Concomitant]
     Active Substance: NITROGLYCERIN
     Dosage: PERFUSION, 2 ML PER HOUR
  2. HEPARIN [Concomitant]
     Active Substance: HEPARIN SODIUM
  3. BISOPROLOL [Concomitant]
     Active Substance: BISOPROLOL
  4. CLOPIDOGREL [Suspect]
     Active Substance: CLOPIDOGREL BISULFATE
     Route: 065
  5. ACETYLSALICYLIC ACID [Concomitant]
     Active Substance: ASPIRIN
  6. ZOFENOPRIL [Concomitant]
     Active Substance: ZOFENOPRIL
  7. NEXIUM [Suspect]
     Active Substance: ESOMEPRAZOLE MAGNESIUM
     Dosage: 1 VIAL DAILY
     Route: 042
  8. CRESTOR [Suspect]
     Active Substance: ROSUVASTATIN CALCIUM
     Route: 048

REACTIONS (1)
  - Vascular stent thrombosis [Recovered/Resolved]
